FAERS Safety Report 24913115 (Version 1)
Quarter: 2025Q1

REPORT INFORMATION
  Report Type: Spontaneous
  Country: US (occurrence: US)
  Receive Date: 20250201
  Receipt Date: 20250201
  Transmission Date: 20250409
  Serious: Yes (Other)
  Sender: NOVITIUM PHARMA
  Company Number: US-NOVITIUMPHARMA-2025USNVP00253

PATIENT
  Age: 58 Year
  Sex: Female

DRUGS (1)
  1. HYDROXYCHLOROQUINE SULFATE [Suspect]
     Active Substance: HYDROXYCHLOROQUINE SULFATE
     Indication: Systemic lupus erythematosus

REACTIONS (4)
  - Cystoid macular oedema [Recovering/Resolving]
  - Retinal detachment [Unknown]
  - Retinal toxicity [Unknown]
  - Eye naevus [Unknown]
